FAERS Safety Report 24256434 (Version 4)
Quarter: 2025Q1

REPORT INFORMATION
  Report Type: Report from Study
  Country: CA (occurrence: CA)
  Receive Date: 20240828
  Receipt Date: 20250326
  Transmission Date: 20250409
  Serious: Yes (Hospitalization)
  Sender: TAKEDA
  Company Number: CA-TAKEDA-2024TUS085120

PATIENT
  Age: 84 Year
  Sex: Female

DRUGS (12)
  1. VEDOLIZUMAB [Suspect]
     Active Substance: VEDOLIZUMAB
     Indication: Colitis ulcerative
  2. VEDOLIZUMAB [Suspect]
     Active Substance: VEDOLIZUMAB
  3. VEDOLIZUMAB [Suspect]
     Active Substance: VEDOLIZUMAB
     Dosage: 300 MILLIGRAM, Q4WEEKS
     Dates: start: 20250320
  4. CALCIUM [Concomitant]
     Active Substance: CALCIUM
  5. ASPIRIN [Concomitant]
     Active Substance: ASPIRIN
  6. VENLAFAXINE HYDROCHLORIDE [Concomitant]
     Active Substance: VENLAFAXINE HYDROCHLORIDE
  7. VITAMIN D [Concomitant]
     Active Substance: VITAMIN D NOS
  8. CARBIDOPA AND LEVODOPA [Concomitant]
     Active Substance: CARBIDOPA\LEVODOPA
  9. HYDROCHLOROTHIAZIDE [Concomitant]
     Active Substance: HYDROCHLOROTHIAZIDE
  10. ENTACAPONE [Concomitant]
     Active Substance: ENTACAPONE
  11. ALENDRONATE [Concomitant]
     Active Substance: ALENDRONATE SODIUM
  12. PREDNISONE [Concomitant]
     Active Substance: PREDNISONE

REACTIONS (7)
  - Diarrhoea [Recovering/Resolving]
  - Asthenia [Recovering/Resolving]
  - Anal incontinence [Unknown]
  - Dysstasia [Not Recovered/Not Resolved]
  - Hypophagia [Not Recovered/Not Resolved]
  - Off label use [Unknown]
  - Abdominal pain [Not Recovered/Not Resolved]

NARRATIVE: CASE EVENT DATE: 20250320
